FAERS Safety Report 24124792 (Version 2)
Quarter: 2024Q3

REPORT INFORMATION
  Report Type: Spontaneous
  Country: US (occurrence: None)
  Receive Date: 20240723
  Receipt Date: 20240813
  Transmission Date: 20241016
  Serious: Yes (Hospitalization)
  Sender: ASTRAZENECA
  Company Number: 2024A161592

PATIENT
  Sex: Female

DRUGS (1)
  1. BREZTRI [Suspect]
     Active Substance: BUDESONIDE\FORMOTEROL\GLYCOPYRROLATE
     Dosage: BREZTRI 2 PUFFS TWICE A DAY
     Route: 055

REACTIONS (5)
  - Atrial fibrillation [Unknown]
  - Product dose omission issue [Unknown]
  - Incorrect dose administered by device [Unknown]
  - Wrong technique in product usage process [Unknown]
  - Device delivery system issue [Unknown]
